FAERS Safety Report 4795018-3 (Version None)
Quarter: 2005Q4

REPORT INFORMATION
  Report Type: 
  Country: None (occurrence: None)
  Receive Date: 20051006
  Receipt Date: 20050922
  Transmission Date: 20060501
  Serious: Yes (Death, Hospitalization)
  Sender: FDA-Public Use
  Company Number: 2005-01994

PATIENT
  Age: 58 Year
  Sex: Male

DRUGS (3)
  1. VELCADE [Suspect]
     Indication: ACUTE MYELOID LEUKAEMIA
     Dates: start: 20050621
  2. IDARUBICIN HCL [Suspect]
     Indication: ACUTE MYELOID LEUKAEMIA
     Dates: start: 20050621
  3. VANCOMYCIN [Concomitant]

REACTIONS (16)
  - AORTIC THROMBOSIS [None]
  - ATELECTASIS [None]
  - BACTERIAL INFECTION [None]
  - BLOOD CREATINE INCREASED [None]
  - BLOOD CULTURE POSITIVE [None]
  - BONE MARROW FAILURE [None]
  - CHRONIC OBSTRUCTIVE PULMONARY DISEASE [None]
  - CYANOSIS [None]
  - FEBRILE NEUTROPENIA [None]
  - HAEMODYNAMIC INSTABILITY [None]
  - HYPERKALAEMIA [None]
  - LOBAR PNEUMONIA [None]
  - PERIPHERAL COLDNESS [None]
  - PLEURAL EFFUSION [None]
  - PULSE ABSENT [None]
  - RESPIRATORY DISTRESS [None]
